FAERS Safety Report 16551626 (Version 1)
Quarter: 2019Q3

REPORT INFORMATION
  Report Type: Spontaneous
  Country: US (occurrence: US)
  Receive Date: 20190529
  Receipt Date: 20190529
  Transmission Date: 20191004
  Serious: Yes (Hospitalization)
  Sender: FDA-Public Use
  Company Number: None

PATIENT
  Age: 7 Year
  Sex: Female
  Weight: 23.3 kg

DRUGS (5)
  1. TRETINOIN (ALL-TRANS RETINOIC ACID, ATRA) [Suspect]
     Active Substance: TRETINOIN
     Dates: end: 20190523
  2. IDARUBICIN [Suspect]
     Active Substance: IDARUBICIN
     Dates: end: 20190513
  3. CYTARABINE. [Suspect]
     Active Substance: CYTARABINE
     Dates: end: 20190503
  4. DEXAMETHASONE. [Suspect]
     Active Substance: DEXAMETHASONE
     Dates: end: 20190520
  5. TRISENOX [Suspect]
     Active Substance: ARSENIC TRIOXIDE
     Dates: end: 20190523

REACTIONS (2)
  - Mucosal inflammation [None]
  - Hypophagia [None]

NARRATIVE: CASE EVENT DATE: 20190523
